FAERS Safety Report 7540298-4 (Version None)
Quarter: 2011Q2

REPORT INFORMATION
  Report Type: 
  Country: None (occurrence: None)
  Receive Date: 20110610
  Receipt Date: 20110606
  Transmission Date: 20111010
  Serious: Yes (Hospitalization)
  Sender: FDA-Public Use
  Company Number: PHHO2011FR09721

PATIENT
  Sex: Male
  Weight: 79 kg

DRUGS (4)
  1. CELLCEPT [Concomitant]
     Indication: RENAL TRANSPLANT
     Dosage: 500 MG, BID
     Route: 048
     Dates: start: 20110224
  2. SANDIMMUNE [Suspect]
     Indication: RENAL TRANSPLANT
     Dosage: 2 MG, BID
     Route: 048
     Dates: start: 20110228, end: 20110411
  3. SANDIMMUNE [Suspect]
     Dosage: 2 MG, BID
     Route: 048
     Dates: start: 20110516
  4. PREDNISONE [Concomitant]
     Indication: RENAL TRANSPLANT
     Dosage: 5 MG, UNK
     Route: 048
     Dates: start: 20110304

REACTIONS (1)
  - URETERIC ANASTOMOSIS COMPLICATION [None]
